FAERS Safety Report 15543235 (Version 1)
Quarter: 2018Q4

REPORT INFORMATION
  Report Type: Report from Study
  Country: US (occurrence: US)
  Receive Date: 20181023
  Receipt Date: 20181023
  Transmission Date: 20190205
  Serious: Yes (Hospitalization)
  Sender: FDA-Public Use
  Company Number: US-JNJFOC-20181031885

PATIENT
  Age: 83 Year
  Sex: Female

DRUGS (10)
  1. IMBRUVICA [Suspect]
     Active Substance: IBRUTINIB
     Indication: MARGINAL ZONE LYMPHOMA
     Route: 048
     Dates: start: 20181013
  2. PROMETHAZINE [Concomitant]
     Active Substance: PROMETHAZINE\PROMETHAZINE HYDROCHLORIDE
  3. POTASSIUM CHLORIDE. [Concomitant]
     Active Substance: POTASSIUM CHLORIDE
  4. IMBRUVICA [Suspect]
     Active Substance: IBRUTINIB
     Indication: MARGINAL ZONE LYMPHOMA
     Route: 048
     Dates: start: 20180726, end: 20180912
  5. MULTIVITAMINS [Concomitant]
     Active Substance: VITAMINS
  6. ASPIRIN. [Concomitant]
     Active Substance: ASPIRIN
  7. GRANISETRON [Concomitant]
     Active Substance: GRANISETRON
  8. PREDNISONE. [Concomitant]
     Active Substance: PREDNISONE
  9. ALLOPURINOL. [Concomitant]
     Active Substance: ALLOPURINOL
  10. REVLIMID [Concomitant]
     Active Substance: LENALIDOMIDE

REACTIONS (6)
  - Incorrect dose administered [Unknown]
  - Hip fracture [Unknown]
  - Fall [Unknown]
  - Balance disorder [Unknown]
  - Hallucination [Unknown]
  - Off label use [Unknown]

NARRATIVE: CASE EVENT DATE: 20181013
